FAERS Safety Report 5578924-1 (Version None)
Quarter: 2008Q1

REPORT INFORMATION
  Report Type: 
  Country: None (occurrence: None)
  Receive Date: 20080102
  Receipt Date: 20071227
  Transmission Date: 20080703
  Serious: Yes (Hospitalization)
  Sender: FDA-Public Use
  Company Number: JP-JNJFOC-20071206291

PATIENT
  Sex: Male
  Weight: 48 kg

DRUGS (3)
  1. REMICADE [Suspect]
     Indication: CROHN'S DISEASE
     Route: 042
  2. PENTASA [Concomitant]
     Route: 048
  3. ELENTAL [Concomitant]
     Route: 048

REACTIONS (2)
  - INTESTINAL OBSTRUCTION [None]
  - LARGE INTESTINE CARCINOMA [None]
